FAERS Safety Report 18822170 (Version 3)
Quarter: 2021Q2

REPORT INFORMATION
  Report Type: Spontaneous
  Country: US (occurrence: US)
  Receive Date: 20210202
  Receipt Date: 20210408
  Transmission Date: 20210717
  Serious: No
  Sender: FDA-Public Use
  Company Number: US-JNJFOC-20210127979

PATIENT
  Age: 50 Year
  Sex: Male
  Weight: 114.3 kg

DRUGS (1)
  1. DARZALEX FASPRO [Suspect]
     Active Substance: DARATUMUMAB\HYALURONIDASE-FIHJ
     Indication: PLASMA CELL MYELOMA
     Dosage: 30000 UNITS
     Route: 058

REACTIONS (1)
  - Syringe issue [Recovered/Resolved]

NARRATIVE: CASE EVENT DATE: 20210118
